FAERS Safety Report 8124815-1 (Version None)
Quarter: 2012Q1

REPORT INFORMATION
  Report Type: 
  Country: None (occurrence: None)
  Receive Date: 20120209
  Receipt Date: 20120206
  Transmission Date: 20120608
  Serious: Yes (Hospitalization)
  Sender: FDA-Public Use
  Company Number: JP-EISAI INC-E2020-10311-CLI-JP

PATIENT
  Age: 83 Year
  Sex: Female

DRUGS (2)
  1. ARICEPT [Suspect]
     Indication: DEMENTIA ALZHEIMER'S TYPE
     Route: 048
     Dates: start: 20120112, end: 20120125
  2. ARICEPT [Suspect]
     Route: 048
     Dates: start: 20120126, end: 20120202

REACTIONS (4)
  - LYMPHADENOPATHY [None]
  - SKIN OEDEMA [None]
  - SKIN DISCOLOURATION [None]
  - EOSINOPHILIA [None]
